FAERS Safety Report 9245107 (Version 1)
Quarter: 2013Q2

REPORT INFORMATION
  Report Type: Spontaneous
  Country: US (occurrence: US)
  Receive Date: 20130422
  Receipt Date: 20130422
  Transmission Date: 20140414
  Serious: Yes (Hospitalization, Other)
  Sender: FDA-Public Use
  Company Number: US-SANOFI-AVENTIS-2013SA039863

PATIENT
  Age: 71 Year
  Sex: Female

DRUGS (1)
  1. APIDRA [Suspect]
     Indication: TYPE 1 DIABETES MELLITUS
     Dosage: INSULIN/CARB RATIO

REACTIONS (3)
  - Spinal fusion surgery [Unknown]
  - Limb injury [Unknown]
  - Hyperglycaemia [Unknown]
